FAERS Safety Report 9354325 (Version 1)
Quarter: 2013Q2

REPORT INFORMATION
  Report Type: Spontaneous
  Country: AU (occurrence: None)
  Receive Date: 20130613
  Receipt Date: 20130613
  Transmission Date: 20140414
  Serious: Yes (Hospitalization, Other)
  Sender: FDA-Public Use
  Company Number: VENL20130002

PATIENT
  Age: 4 Year
  Sex: Female

DRUGS (1)
  1. VENLAFAXINE HCL [Suspect]
     Indication: ACCIDENTAL EXPOSURE TO PRODUCT BY CHILD
     Route: 048

REACTIONS (13)
  - Mutism [None]
  - Urinary incontinence [None]
  - Musculoskeletal stiffness [None]
  - Hypophagia [None]
  - Flushing [None]
  - Pyrexia [None]
  - Drooling [None]
  - Blood pressure decreased [None]
  - Tachycardia [None]
  - Abasia [None]
  - Extrapyramidal disorder [None]
  - Bradykinesia [None]
  - Dystonia [None]
